FAERS Safety Report 5340715-4 (Version None)
Quarter: 2007Q2

REPORT INFORMATION
  Report Type: 
  Country: None (occurrence: None)
  Receive Date: 20070405
  Receipt Date: 20061226
  Transmission Date: 20071010
  Serious: No
  Sender: FDA-Public Use
  Company Number: US200612003174

PATIENT
  Age: 47 Year
  Sex: Female

DRUGS (1)
  1. CYMBALTA [Suspect]
     Indication: FIBROMYALGIA
     Dosage: SEE IMAGE
     Dates: start: 20040101

REACTIONS (5)
  - FEELING ABNORMAL [None]
  - FEELING JITTERY [None]
  - LOSS OF EMPLOYMENT [None]
  - MALAISE [None]
  - PAIN [None]
